FAERS Safety Report 7516383-X (Version None)
Quarter: 2011Q2

REPORT INFORMATION
  Report Type: 
  Country: None (occurrence: None)
  Receive Date: 20110601
  Receipt Date: 20110525
  Transmission Date: 20111010
  Serious: Yes (Other)
  Sender: FDA-Public Use
  Company Number: DE-TEVA-283724GER

PATIENT
  Sex: Female
  Weight: 55 kg

DRUGS (6)
  1. ESCITALOPRAM [Suspect]
     Indication: DEPRESSION
     Dosage: 10 MILLIGRAM;
     Route: 048
     Dates: start: 20091001, end: 20091201
  2. AUGMENTAN FILMTABLETTEN 875/125MG [Concomitant]
     Indication: URINARY TRACT INFECTION
     Dosage: 250 MG/D (2X125) CLAVULANATE + 1750 MG /D (2X875) AMOXICILLIN
     Route: 048
     Dates: start: 20091205, end: 20091206
  3. MIRTAZAPINE [Suspect]
     Route: 048
     Dates: end: 20100612
  4. ACETAMINOPHEN [Concomitant]
     Indication: PAIN
     Dosage: 500 MILLIGRAM;
     Route: 048
     Dates: start: 20091205, end: 20091208
  5. MIRTAZAPINE [Suspect]
     Indication: DEPRESSION
     Dosage: 30 MILLIGRAM;
     Route: 048
     Dates: start: 20091001
  6. FOLIO FORTE [Concomitant]
     Indication: PROPHYLAXIS OF NEURAL TUBE DEFECT
     Dosage: .8 MILLIGRAM;
     Route: 048

REACTIONS (1)
  - PRE-ECLAMPSIA [None]
